FAERS Safety Report 24449259 (Version 1)
Quarter: 2024Q4

REPORT INFORMATION
  Report Type: Report from Study
  Country: IN (occurrence: IN)
  Receive Date: 20241017
  Receipt Date: 20241017
  Transmission Date: 20250115
  Serious: Yes (Death)
  Sender: ROCHE
  Company Number: IN-ROCHE-10000049453

PATIENT
  Age: 64 Year
  Sex: Male

DRUGS (1)
  1. TECENTRIQ [Suspect]
     Active Substance: ATEZOLIZUMAB
     Indication: Hepatocellular carcinoma
     Route: 042
     Dates: start: 20240629

REACTIONS (6)
  - Alanine aminotransferase increased [Unknown]
  - Aspartate aminotransferase increased [Unknown]
  - Liver function test abnormal [Unknown]
  - Pleural effusion [Fatal]
  - Oxygen saturation decreased [Fatal]
  - Pneumonia [Fatal]

NARRATIVE: CASE EVENT DATE: 20240901
